FAERS Safety Report 5598394-7 (Version None)
Quarter: 2008Q1

REPORT INFORMATION
  Report Type: 
  Country: None (occurrence: None)
  Receive Date: 20080122
  Receipt Date: 20080115
  Transmission Date: 20080703
  Serious: Yes (Other)
  Sender: FDA-Public Use
  Company Number: US-BAYER-200810253BCC

PATIENT
  Age: 74 Year
  Sex: Male
  Weight: 98 kg

DRUGS (4)
  1. ALEVE [Suspect]
     Indication: ARTHRALGIA
     Dosage: TOTAL DAILY DOSE: 220 MG  UNIT DOSE: 220 MG
     Route: 048
     Dates: start: 20080114, end: 20080114
  2. TOPROL-XL [Concomitant]
  3. VERAPAMIL [Concomitant]
  4. ALTACE [Concomitant]

REACTIONS (1)
  - HAEMOPTYSIS [None]
